FAERS Safety Report 19201123 (Version 1)
Quarter: 2021Q2

REPORT INFORMATION
  Report Type: Spontaneous
  Country: US (occurrence: US)
  Receive Date: 20210430
  Receipt Date: 20210430
  Transmission Date: 20210717
  Serious: No
  Sender: FDA-Public Use
  Company Number: US-PFIZER INC-2021376137

PATIENT

DRUGS (1)
  1. ESTROGENS CONJUGATED [Suspect]
     Active Substance: ESTROGENS, CONJUGATED
     Indication: HYPERHIDROSIS
     Dosage: UNK

REACTIONS (5)
  - Breast tenderness [Unknown]
  - Feeling abnormal [Unknown]
  - Muscle spasms [Unknown]
  - Depressed mood [Unknown]
  - Off label use [Unknown]
